FAERS Safety Report 7965211-7 (Version None)
Quarter: 2011Q4

REPORT INFORMATION
  Report Type: 
  Country: None (occurrence: None)
  Receive Date: 20111208
  Receipt Date: 20111128
  Transmission Date: 20120403
  Serious: Yes (Hospitalization)
  Sender: FDA-Public Use
  Company Number: US-BAYER-2011-114935

PATIENT
  Age: 58 Year
  Sex: Male
  Weight: 96 kg

DRUGS (2)
  1. ALEVE (CAPLET) [Suspect]
     Indication: PAIN
     Dosage: UNK
     Route: 048
     Dates: start: 20111119
  2. NAPROXEN (ALEVE) [Suspect]
     Indication: PAIN

REACTIONS (9)
  - VOMITING [None]
  - DECREASED APPETITE [None]
  - DISABILITY [None]
  - ABDOMINAL DISCOMFORT [None]
  - RETCHING [None]
  - RENAL IMPAIRMENT [None]
  - MEDICATION ERROR [None]
  - WEIGHT DECREASED [None]
  - PAIN [None]
